FAERS Safety Report 8059878-5 (Version None)
Quarter: 2012Q1

REPORT INFORMATION
  Report Type: 
  Country: None (occurrence: None)
  Receive Date: 20120120
  Receipt Date: 20120111
  Transmission Date: 20120608
  Serious: Yes (Hospitalization)
  Sender: FDA-Public Use
  Company Number: US-BAYER-2011-075446

PATIENT
  Age: 21 Year
  Sex: Female
  Weight: 52.154 kg

DRUGS (4)
  1. DROSPIRENONE AND ETHINYL ESTRADIOL [Suspect]
     Indication: ACNE
     Dosage: UNK
     Dates: start: 20090801
  2. YASMIN [Suspect]
     Indication: ACNE
     Dosage: UNK
     Dates: start: 20090801
  3. MIDOL EXTENDED RELIEF CAPLETS [Concomitant]
     Indication: ABDOMINAL PAIN
  4. ACETAMINOPHEN [Concomitant]
     Indication: HEADACHE

REACTIONS (3)
  - CEREBROVASCULAR ACCIDENT [None]
  - INJURY [None]
  - CEREBRAL THROMBOSIS [None]
